FAERS Safety Report 13222481 (Version 3)
Quarter: 2017Q2

REPORT INFORMATION
  Report Type: Spontaneous
  Country: US (occurrence: US)
  Receive Date: 20170212
  Receipt Date: 20170410
  Transmission Date: 20170830
  Serious: Yes (Other)
  Sender: FDA-Public Use
  Company Number: US-CELGENEUS-USA-2017020845

PATIENT
  Age: 69 Year
  Sex: Female

DRUGS (5)
  1. DEXALONE [Concomitant]
     Indication: BARRETT^S OESOPHAGUS
     Route: 065
     Dates: start: 201608
  2. OTEZLA [Suspect]
     Active Substance: APREMILAST
     Indication: PSORIASIS
     Dosage: 30 MILLIGRAM
     Route: 048
  3. OTEZLA [Suspect]
     Active Substance: APREMILAST
     Indication: PSORIASIS
     Dosage: 60 MILLIGRAM
     Route: 048
     Dates: start: 20170128
  4. LUMIGAN [Concomitant]
     Active Substance: BIMATOPROST
     Indication: GLAUCOMA
     Route: 065
     Dates: start: 20170121
  5. DEXILANT [Concomitant]
     Active Substance: DEXLANSOPRAZOLE
     Indication: OESOPHAGEAL DISORDER
     Route: 065

REACTIONS (10)
  - Diarrhoea [Not Recovered/Not Resolved]
  - Eye irritation [Not Recovered/Not Resolved]
  - Lacrimation increased [Not Recovered/Not Resolved]
  - Tremor [Recovering/Resolving]
  - Feeling jittery [Not Recovered/Not Resolved]
  - Haematemesis [Not Recovered/Not Resolved]
  - Eye pain [Unknown]
  - Faeces discoloured [Not Recovered/Not Resolved]
  - Paranasal sinus hypersecretion [Not Recovered/Not Resolved]
  - Nausea [Not Recovered/Not Resolved]

NARRATIVE: CASE EVENT DATE: 20170129
